FAERS Safety Report 16544468 (Version 1)
Quarter: 2019Q3

REPORT INFORMATION
  Report Type: Spontaneous
  Country: US (occurrence: US)
  Receive Date: 20190528
  Receipt Date: 20190528
  Transmission Date: 20191004
  Serious: Yes (Hospitalization)
  Sender: FDA-Public Use
  Company Number: None

PATIENT
  Age: 85 Year
  Sex: Male

DRUGS (1)
  1. IBUPROFEN. [Suspect]
     Active Substance: IBUPROFEN
     Indication: OSTEOARTHRITIS
     Route: 048
     Dates: start: 20190222

REACTIONS (4)
  - Gastrointestinal haemorrhage [None]
  - Myocardial ischaemia [None]
  - Anaemia [None]
  - Acute myocardial infarction [None]

NARRATIVE: CASE EVENT DATE: 20190222
